FAERS Safety Report 23256255 (Version 2)
Quarter: 2023Q4

REPORT INFORMATION
  Report Type: Report from Study
  Country: US (occurrence: US)
  Receive Date: 20231204
  Receipt Date: 20231205
  Transmission Date: 20240110
  Serious: Yes (Death)
  Sender: FDA-Public Use
  Company Number: US-ABBVIE-5517599

PATIENT
  Age: 7 Year
  Sex: Male
  Weight: 33 kg

DRUGS (2)
  1. NAVITOCLAX [Suspect]
     Active Substance: NAVITOCLAX
     Indication: Acute lymphocytic leukaemia
     Route: 065
  2. VENETOCLAX [Suspect]
     Active Substance: VENETOCLAX
     Indication: Acute lymphocytic leukaemia
     Route: 048

REACTIONS (1)
  - Escherichia sepsis [Fatal]

NARRATIVE: CASE EVENT DATE: 20231122
